FAERS Safety Report 7945937-1 (Version None)
Quarter: 2011Q4

REPORT INFORMATION
  Report Type: 
  Country: None (occurrence: None)
  Receive Date: 20111129
  Receipt Date: 20111122
  Transmission Date: 20120403
  Serious: Yes (Disabling)
  Sender: FDA-Public Use
  Company Number: PHHY2011FR91657

PATIENT
  Sex: Female
  Weight: 65 kg

DRUGS (4)
  1. EXTAVIA [Suspect]
     Dosage: 1 DF, QOD
     Route: 058
     Dates: start: 20110707
  2. CALCIPOTRIENE [Concomitant]
     Dosage: UNK UKN, UNK
     Dates: start: 20010406
  3. NUX VOMICA [Concomitant]
     Dosage: UNK UKN, UNK
     Dates: start: 20060316
  4. ACETAMINOPHEN [Concomitant]
     Dosage: UNK UKN, UNK
     Dates: start: 20110707

REACTIONS (4)
  - SLEEP DISORDER [None]
  - MYALGIA [None]
  - HEADACHE [None]
  - INSOMNIA [None]
